FAERS Safety Report 5588547-6 (Version None)
Quarter: 2008Q1

REPORT INFORMATION
  Report Type: 
  Country: None (occurrence: None)
  Receive Date: 20080111
  Receipt Date: 20080109
  Transmission Date: 20080703
  Serious: No
  Sender: FDA-Public Use
  Company Number: FR-PFIZER INC-2007106146

PATIENT
  Age: 34 Year
  Sex: Female

DRUGS (2)
  1. SALAZOPYRINE [Suspect]
     Dosage: DAILY DOSE:2GRAM
     Dates: start: 20050401, end: 20061101
  2. ADALIMUMAB [Suspect]
     Route: 058
     Dates: start: 20060515, end: 20061215

REACTIONS (1)
  - NO ADVERSE EVENT [None]
